FAERS Safety Report 12793720 (Version 1)
Quarter: 2016Q3

REPORT INFORMATION
  Report Type: Spontaneous
  Country: US (occurrence: US)
  Receive Date: 20160929
  Receipt Date: 20160929
  Transmission Date: 20161109
  Serious: No
  Sender: FDA-Public Use
  Company Number: US-JNJFOC-20160914793

PATIENT
  Age: 3 Decade
  Sex: Female

DRUGS (3)
  1. LITHIUM. [Concomitant]
     Active Substance: LITHIUM
     Route: 065
  2. INVEGA SUSTENNA [Suspect]
     Active Substance: PALIPERIDONE PALMITATE
     Indication: BIPOLAR DISORDER
     Dosage: DAY 8 INJECTION
     Route: 030
     Dates: start: 201609, end: 201609
  3. INVEGA SUSTENNA [Suspect]
     Active Substance: PALIPERIDONE PALMITATE
     Indication: BIPOLAR DISORDER
     Dosage: DAY 1 INJECTION
     Route: 030
     Dates: start: 201608, end: 201608

REACTIONS (4)
  - Weight increased [Unknown]
  - Product use issue [Unknown]
  - Apathy [Unknown]
  - Off label use [Unknown]

NARRATIVE: CASE EVENT DATE: 201608
